FAERS Safety Report 6287950-9 (Version None)
Quarter: 2009Q3

REPORT INFORMATION
  Report Type: 
  Country: None (occurrence: None)
  Receive Date: 20090729
  Receipt Date: 20090717
  Transmission Date: 20100115
  Serious: Yes (Hospitalization)
  Sender: FDA-Public Use
  Company Number: ZA-ELI_LILLY_AND_COMPANY-ZA200907004275

PATIENT
  Sex: Male
  Weight: 133 kg

DRUGS (15)
  1. PRASUGREL HYDROCHLORIDE [Suspect]
     Indication: ACUTE CORONARY SYNDROME
     Dosage: UNK, UNK
     Dates: start: 20081104
  2. ASPIRIN [Concomitant]
     Indication: CORONARY ARTERY DISEASE
     Dosage: 150 MG, UNK
     Dates: start: 20070701
  3. ASPIRIN [Concomitant]
     Dosage: 75 MG, UNK
     Dates: start: 20081104
  4. ENALAPRIL MALEATE [Concomitant]
     Indication: HYPERTENSION
     Dates: start: 20081030
  5. ALDACTONE [Concomitant]
     Indication: HYPERTENSION
     Dates: start: 20081030
  6. ZOCOR [Concomitant]
     Indication: HYPERLIPIDAEMIA
     Dates: start: 20070701
  7. ANGISED [Concomitant]
     Indication: ANGINA PECTORIS
     Dates: start: 20081201
  8. ELANTAN [Concomitant]
     Indication: ANGINA PECTORIS
     Dates: start: 20090126
  9. CARVEDILOL [Concomitant]
     Indication: ANGINA PECTORIS
     Dates: start: 20090126
  10. LASIX [Concomitant]
     Indication: CARDIOMYOPATHY
     Dates: start: 20090619
  11. ZOCOR [Concomitant]
     Indication: CARDIOMYOPATHY
     Dates: start: 20090619
  12. ENOXAPARIN SODIUM [Concomitant]
     Indication: CARDIOMYOPATHY
     Dates: start: 20090619
  13. ENOXAPARIN SODIUM [Concomitant]
     Dates: start: 20090619
  14. CARVEDILOL [Concomitant]
     Indication: CARDIOMYOPATHY
     Dates: start: 20090621
  15. PANADO [Concomitant]
     Indication: CARDIOMYOPATHY

REACTIONS (1)
  - HOSPITALISATION [None]
